FAERS Safety Report 26194832 (Version 1)
Quarter: 2025Q4

REPORT INFORMATION
  Report Type: Spontaneous
  Country: JP (occurrence: JP)
  Receive Date: 20251224
  Receipt Date: 20251224
  Transmission Date: 20260118
  Serious: Yes (Other)
  Sender: LEO PHARM
  Company Number: JP-LEO Pharma-385133

PATIENT
  Sex: Male

DRUGS (1)
  1. ENSTILAR [Suspect]
     Active Substance: BETAMETHASONE DIPROPIONATE\CALCIPOTRIENE HYDRATE
     Indication: Psoriasis
     Dosage: APPLY ONCE A DAY??EXPIRY DATE: UNKNOWN
     Route: 003

REACTIONS (2)
  - Product use issue [Unknown]
  - Adrenal insufficiency [Recovered/Resolved]

NARRATIVE: CASE EVENT DATE: 20251001
